FAERS Safety Report 11171533 (Version 1)
Quarter: 2015Q2

REPORT INFORMATION
  Report Type: Spontaneous
  Country: US (occurrence: None)
  Receive Date: 20150605
  Receipt Date: 20150605
  Transmission Date: 20150821
  Serious: Yes (Other)
  Sender: FDA-Public Use
  Company Number: None

PATIENT
  Age: 37 Year
  Sex: Female
  Weight: 100.25 kg

DRUGS (3)
  1. VITAMIN D [Concomitant]
     Active Substance: CHOLECALCIFEROL
  2. ADDERALL XR [Concomitant]
     Active Substance: AMPHETAMINE ASPARTATE\AMPHETAMINE SULFATE\DEXTROAMPHETAMINE SACCHARATE\DEXTROAMPHETAMINE SULFATE
  3. TRULICITY [Suspect]
     Active Substance: DULAGLUTIDE
     Indication: INSULIN RESISTANCE
     Dosage: 1 SHOT WEEKLY?ONCE A WEEK?GIVEN INTO/UNDER THE SKIN

REACTIONS (8)
  - Thirst decreased [None]
  - Endocrine disorder [None]
  - Stress [None]
  - Urine output decreased [None]
  - Urine viscosity increased [None]
  - Dehydration [None]
  - Arthropod bite [None]
  - Herpes zoster [None]

NARRATIVE: CASE EVENT DATE: 20150526
